FAERS Safety Report 4820836-2 (Version None)
Quarter: 2005Q4

REPORT INFORMATION
  Report Type: 
  Country: None (occurrence: None)
  Receive Date: 20051104
  Receipt Date: 20051026
  Transmission Date: 20060501
  Serious: Yes (Other)
  Sender: FDA-Public Use
  Company Number: BE-AVENTIS-200519447GDDC

PATIENT
  Age: 51 Year
  Sex: Male

DRUGS (12)
  1. RIFADIN [Suspect]
     Indication: GRANULOMA
  2. MYCOPHENOLATE MOFETIL [Suspect]
     Indication: IMMUNOSUPPRESSANT DRUG THERAPY
  3. TACROLIMUS [Suspect]
     Indication: IMMUNOSUPPRESSANT DRUG THERAPY
     Dosage: DOSE: 02.MG/KG(8-10 NG/ML)
     Route: 048
  4. METHYLPREDNISOLONE [Concomitant]
     Dosage: DOSE: UNK
  5. ANTITHYMOCYTE GLOBULIN [Concomitant]
     Dosage: DOSE: UNK
  6. NYSTATIN [Concomitant]
     Dosage: DOSE: UNK
  7. RANITIDINE [Concomitant]
     Dosage: DOSE: UNK
  8. AMPHOTERICIN B [Concomitant]
     Dosage: DOSE: UNK
  9. GANCICLOVIR [Concomitant]
     Dosage: DOSE: UNK
  10. COTRIMOXAZOLE [Concomitant]
     Dosage: DOSE: UNK
  11. CALCIUM WITH VITAMIN D [Concomitant]
     Dosage: DOSE: UNK
  12. ENOXAPARIN SODIUM [Concomitant]
     Dosage: DOSE: UNK

REACTIONS (1)
  - DRUG LEVEL DECREASED [None]
